FAERS Safety Report 24269591 (Version 1)
Quarter: 2024Q3

REPORT INFORMATION
  Report Type: Report from Study
  Country: US (occurrence: None)
  Receive Date: 20240830
  Receipt Date: 20240830
  Transmission Date: 20241017
  Serious: Yes (Life-Threatening)
  Sender: ASTRAZENECA
  Company Number: 2024A194257

PATIENT
  Sex: Female
  Weight: 85.7 kg

DRUGS (1)
  1. CALQUENCE [Suspect]
     Active Substance: ACALABRUTINIB
     Indication: Extranodal marginal zone B-cell lymphoma (BALT type)
     Route: 048

REACTIONS (2)
  - Atrial fibrillation [Recovering/Resolving]
  - Myocardial infarction [Recovering/Resolving]
